FAERS Safety Report 8616045-1 (Version None)
Quarter: 2012Q3

REPORT INFORMATION
  Report Type: 
  Country: None (occurrence: None)
  Receive Date: 20120823
  Receipt Date: 20120817
  Transmission Date: 20120928
  Serious: Yes (Hospitalization)
  Sender: FDA-Public Use
  Company Number: KR-ROCHE-1069374

PATIENT
  Age: 64 Year
  Sex: Female
  Weight: 60.4 kg

DRUGS (3)
  1. ZELBORAF [Suspect]
     Indication: MALIGNANT MELANOMA
     Dosage: LAST DOSE PRIOR TO SAE: 11/MAY/2012
     Route: 048
     Dates: start: 20111219, end: 20120514
  2. ZELBORAF [Suspect]
     Dates: start: 20120523
  3. ZELBORAF [Suspect]

REACTIONS (1)
  - CHOLECYSTITIS [None]
